FAERS Safety Report 17916452 (Version 2)
Quarter: 2022Q1

REPORT INFORMATION
  Report Type: Spontaneous
  Country: US (occurrence: US)
  Receive Date: 20200619
  Receipt Date: 20220215
  Transmission Date: 20220423
  Serious: Yes (Other)
  Sender: FDA-Public Use
  Company Number: US-PFIZER INC-2020234407

PATIENT
  Age: 59 Year
  Sex: Female

DRUGS (12)
  1. KETAMINE HYDROCHLORIDE [Suspect]
     Active Substance: KETAMINE HYDROCHLORIDE
     Indication: Depression
     Dosage: UNK (9 INFUSIONS)
  2. KETAMINE HYDROCHLORIDE [Suspect]
     Active Substance: KETAMINE HYDROCHLORIDE
     Indication: Suicidal ideation
     Dosage: 35 MG INFUSED ACROSS 50 MIN
  3. KETAMINE HYDROCHLORIDE [Suspect]
     Active Substance: KETAMINE HYDROCHLORIDE
     Indication: Anxiety
     Dosage: 90 MG INFUSED ACROSS 60 MIN
  4. KETAMINE [Suspect]
     Active Substance: KETAMINE
     Indication: Depression
     Dosage: 225 MG (225 MG PER DOSING OCCASION, DOSED IN TROCHES)
     Route: 048
  5. KETAMINE [Suspect]
     Active Substance: KETAMINE
     Indication: Suicidal ideation
     Dosage: 337 MG (SELF-MEDICATED)
     Route: 048
  6. KETAMINE [Suspect]
     Active Substance: KETAMINE
     Indication: Anxiety
  7. LAMOTRIGINE [Concomitant]
     Active Substance: LAMOTRIGINE
     Dosage: 150 MG, DAILY
  8. DULOXETINE [Concomitant]
     Active Substance: DULOXETINE
     Dosage: 60 MG, DAILY
  9. LISDEXAMFETAMINE [Concomitant]
     Active Substance: LISDEXAMFETAMINE
     Dosage: 70 MG, DAILY
  10. DEXTROAMPHET SACCHARAT, AMPHET ASPARTATE, DEXTROAMPHET SULFATE AND AMP [Concomitant]
     Active Substance: AMPHETAMINE ASPARTATE\AMPHETAMINE SULFATE\DEXTROAMPHETAMINE SACCHARATE\DEXTROAMPHETAMINE SULFATE
     Dosage: 20 MG, DAILY
  11. TOPIRAMATE [Concomitant]
     Active Substance: TOPIRAMATE
     Dosage: 100 MG, DAILY
  12. TRAZODONE [Concomitant]
     Active Substance: TRAZODONE HYDROCHLORIDE
     Dosage: 100 MG, DAILY

REACTIONS (3)
  - Alcohol poisoning [Unknown]
  - Alcoholism [Recovered/Resolved]
  - Off label use [Unknown]
